FAERS Safety Report 8998077 (Version 1)
Quarter: 2013Q1

REPORT INFORMATION
  Report Type: Spontaneous
  Country: HR (occurrence: HR)
  Receive Date: 20130104
  Receipt Date: 20130104
  Transmission Date: 20140127
  Serious: Yes (Hospitalization)
  Sender: FDA-Public Use
  Company Number: HR-TEVA-378285ISR

PATIENT
  Age: 89 Year
  Sex: Female
  Weight: 61 kg

DRUGS (2)
  1. SULFAMETHOXAZOLE/TRIMETHOPRIM [Suspect]
     Indication: NEPHRITIS
     Dosage: 4 DOSAGE FORMS DAILY; DOSAGE FORMS IS 400 MG SULFAMETHOXAZOLE + 80 MG TRIMETHOPRIM
     Route: 048
     Dates: start: 20121112, end: 20121114
  2. BYOL [Concomitant]
     Dosage: 1.25 MILLIGRAM DAILY;
     Route: 048
     Dates: start: 2005

REACTIONS (2)
  - Psychomotor hyperactivity [Recovered/Resolved]
  - Confusional state [Recovered/Resolved]
